FAERS Safety Report 6260193-0 (Version None)
Quarter: 2009Q3

REPORT INFORMATION
  Report Type: 
  Country: None (occurrence: None)
  Receive Date: 20090708
  Receipt Date: 20090630
  Transmission Date: 20100115
  Serious: Yes (Hospitalization)
  Sender: FDA-Public Use
  Company Number: B0568424A

PATIENT
  Sex: Male

DRUGS (14)
  1. LAMICTAL [Suspect]
     Indication: BIPOLAR DISORDER
     Dosage: 50MG PER DAY
     Route: 048
     Dates: start: 20090204, end: 20090330
  2. VALPROATE SODIUM [Concomitant]
     Route: 048
  3. LIMAS [Concomitant]
     Indication: BIPOLAR I DISORDER
     Dosage: 800MG PER DAY
     Route: 048
     Dates: start: 20080901, end: 20090330
  4. LEXOTAN [Concomitant]
     Dosage: 5MG PER DAY
     Route: 048
     Dates: start: 20080901, end: 20090330
  5. BENZALIN [Concomitant]
     Indication: INSOMNIA
     Dosage: 5MG PER DAY
     Route: 048
     Dates: start: 20080901, end: 20090330
  6. SELENICA-R [Concomitant]
     Indication: BIPOLAR I DISORDER
     Dosage: 600MG PER DAY
     Route: 048
     Dates: start: 20070501, end: 20090330
  7. SEROQUEL [Concomitant]
     Indication: BIPOLAR I DISORDER
     Dosage: 100MG PER DAY
     Route: 048
     Dates: start: 20080901, end: 20090330
  8. ABILIFY [Concomitant]
     Indication: BIPOLAR I DISORDER
     Dosage: 12MG PER DAY
     Route: 048
     Dates: start: 20071215, end: 20090330
  9. ZOLOFT [Concomitant]
     Indication: DEPRESSION
     Dosage: 100MG PER DAY
     Route: 048
     Dates: start: 20080901, end: 20090330
  10. LIMAS [Concomitant]
     Route: 048
     Dates: start: 20090402
  11. BENZALIN [Concomitant]
     Route: 048
     Dates: start: 20090410
  12. SEROQUEL [Concomitant]
     Route: 048
     Dates: start: 20090403
  13. ZOLOFT [Concomitant]
     Route: 048
     Dates: start: 20090402, end: 20090407
  14. RISPERDAL [Concomitant]
     Route: 048
     Dates: start: 20090403

REACTIONS (15)
  - CONJUNCTIVAL HYPERAEMIA [None]
  - DERMATITIS EXFOLIATIVE [None]
  - DRUG RASH WITH EOSINOPHILIA AND SYSTEMIC SYMPTOMS [None]
  - DRY EYE [None]
  - ERYTHEMA [None]
  - HEPATIC FUNCTION ABNORMAL [None]
  - ILL-DEFINED DISORDER [None]
  - LACRIMAL DISORDER [None]
  - OCULAR HYPERAEMIA [None]
  - OEDEMA MUCOSAL [None]
  - OROPHARYNGEAL PAIN [None]
  - PYREXIA [None]
  - RASH GENERALISED [None]
  - TREMOR [None]
  - WHITE BLOOD CELL COUNT DECREASED [None]
